FAERS Safety Report 8830724 (Version 3)
Quarter: 2012Q4

REPORT INFORMATION
  Report Type: 
  Country: FR (occurrence: FR)
  Receive Date: 20121009
  Receipt Date: 20121101
  Transmission Date: 20130627
  Serious: Yes (Hospitalization)
  Sender: FDA-Public Use
  Company Number: FR-PFIZER INC-2012244953

PATIENT
  Age: 67 Year
  Sex: Female

DRUGS (5)
  1. ARGANOVA [Suspect]
     Indication: HEPARIN-INDUCED THROMBOCYTOPENIA
     Dosage: initial 2 ug/kg/min (7 ml/hr)
     Route: 041
     Dates: start: 20120817, end: 20120819
  2. ORGARAN [Concomitant]
     Dosage: Unk
  3. ULTIVA [Concomitant]
     Indication: SEDATION
  4. CATAPRESSAN [Concomitant]
     Indication: SEDATION
  5. INSULIN [Concomitant]
     Indication: DIABETES

REACTIONS (6)
  - Activated partial thromboplastin time prolonged [Recovered/Resolved]
  - Muscle haemorrhage [Recovered/Resolved]
  - Muscle haemorrhage [Recovered/Resolved]
  - Anaemia [Recovered/Resolved]
  - Prothrombin time shortened [Recovered/Resolved]
  - International normalised ratio increased [Recovered/Resolved]
